FAERS Safety Report 9286669 (Version 4)
Quarter: 2013Q4

REPORT INFORMATION
  Report Type: Spontaneous
  Country: US (occurrence: US)
  Receive Date: 20130513
  Receipt Date: 20131023
  Transmission Date: 20140711
  Serious: Yes (Hospitalization, Other)
  Sender: FDA-Public Use
  Company Number: US-TEVA-404547USA

PATIENT
  Sex: Male

DRUGS (1)
  1. GLYBURIDE [Suspect]
     Route: 048

REACTIONS (15)
  - Sepsis [Unknown]
  - Pneumonia [Unknown]
  - Hypoglycaemic coma [Unknown]
  - Loss of consciousness [Unknown]
  - Unresponsive to stimuli [Unknown]
  - Abasia [Unknown]
  - Hypoglycaemia [Unknown]
  - Pleural effusion [Unknown]
  - Lung infiltration [Unknown]
  - Syncope [Unknown]
  - Asthma [Unknown]
  - Asthenia [Unknown]
  - Tachycardia [Unknown]
  - Chromaturia [Unknown]
  - Diarrhoea [Unknown]
